FAERS Safety Report 8322895-1 (Version None)
Quarter: 2012Q2

REPORT INFORMATION
  Report Type: 
  Country: None (occurrence: None)
  Receive Date: 20120426
  Receipt Date: 20120416
  Transmission Date: 20120825
  Serious: Yes (Other)
  Sender: FDA-Public Use
  Company Number: ADR-2011-11579

PATIENT
  Sex: Male

DRUGS (1)
  1. BACLOFEN [Suspect]

REACTIONS (1)
  - IMPLANT SITE EROSION [None]
